FAERS Safety Report 20700832 (Version 1)
Quarter: 2022Q2

REPORT INFORMATION
  Report Type: Spontaneous
  Country: US (occurrence: US)
  Receive Date: 20220412
  Receipt Date: 20220412
  Transmission Date: 20220721
  Serious: No
  Sender: FDA-Public Use
  Company Number: US-PFIZER INC-2020476689

PATIENT
  Age: 84 Year
  Sex: Male

DRUGS (3)
  1. PROPOFOL [Suspect]
     Active Substance: PROPOFOL
     Dosage: 50 ML
  2. PROPOFOL [Suspect]
     Active Substance: PROPOFOL
     Dosage: 50 ML
  3. PROPOFOL [Suspect]
     Active Substance: PROPOFOL
     Dosage: 100 ML

REACTIONS (1)
  - Product supply issue [Unknown]
